FAERS Safety Report 6270535-8 (Version None)
Quarter: 2009Q3

REPORT INFORMATION
  Report Type: 
  Country: None (occurrence: None)
  Receive Date: 20090716
  Receipt Date: 20090707
  Transmission Date: 20100115
  Serious: Yes (Hospitalization)
  Sender: FDA-Public Use
  Company Number: FR-PFIZER INC-2009214899

PATIENT
  Age: 62 Year

DRUGS (6)
  1. TRIFLUCAN [Suspect]
     Dosage: UNK
     Route: 048
     Dates: start: 20090304, end: 20090326
  2. AUGMENTIN [Suspect]
     Dosage: UNK
     Route: 042
     Dates: start: 20090226, end: 20090302
  3. TAVANIC [Suspect]
     Dosage: UNK
     Route: 042
     Dates: start: 20090226, end: 20090303
  4. TAZOCILLINE [Suspect]
     Dosage: UNK
     Route: 042
     Dates: start: 20090302, end: 20090326
  5. AMIKLIN [Suspect]
     Dosage: UNK
     Route: 042
     Dates: start: 20090302, end: 20090317
  6. VANCOMYCIN [Suspect]
     Dosage: UNK
     Route: 042
     Dates: start: 20090318, end: 20090326

REACTIONS (1)
  - DRUG RASH WITH EOSINOPHILIA AND SYSTEMIC SYMPTOMS [None]
